FAERS Safety Report 15674147 (Version 1)
Quarter: 2018Q4

REPORT INFORMATION
  Report Type: Report from Study
  Country: ES (occurrence: ES)
  Receive Date: 20181130
  Receipt Date: 20181130
  Transmission Date: 20190205
  Serious: Yes (Hospitalization)
  Sender: FDA-Public Use
  Company Number: ES-TEVA-2018-ES-980017

PATIENT
  Age: 44 Year
  Sex: Male

DRUGS (1)
  1. IBUPROFENO (1769A) [Suspect]
     Active Substance: IBUPROFEN
     Route: 048
     Dates: start: 201802, end: 201802

REACTIONS (1)
  - Upper gastrointestinal haemorrhage [Recovered/Resolved]

NARRATIVE: CASE EVENT DATE: 20180210
